FAERS Safety Report 24117666 (Version 2)
Quarter: 2024Q3

REPORT INFORMATION
  Report Type: Spontaneous
  Country: IT (occurrence: IT)
  Receive Date: 20240722
  Receipt Date: 20240925
  Transmission Date: 20241017
  Serious: Yes (Other)
  Sender: UCB
  Company Number: IT-UCBSA-2024036433

PATIENT
  Age: 88 Year
  Sex: Male

DRUGS (2)
  1. LEVETIRACETAM [Interacting]
     Active Substance: LEVETIRACETAM
     Indication: Epilepsy
     Dosage: 2000 MILLIGRAM DAILY DOSE
  2. APIXABAN [Interacting]
     Active Substance: APIXABAN
     Indication: Anticoagulant therapy
     Dosage: UNK
     Route: 048

REACTIONS (2)
  - Epilepsy [Unknown]
  - Drug interaction [Unknown]
